FAERS Safety Report 4548602-6 (Version None)
Quarter: 2005Q1

REPORT INFORMATION
  Report Type: 
  Country: None (occurrence: None)
  Receive Date: 20050105
  Receipt Date: 20050105
  Transmission Date: 20050727
  Serious: Yes (Death)
  Sender: FDA-Public Use
  Company Number: None

PATIENT
  Age: 62 Year
  Sex: Male
  Weight: 111.5849 kg

DRUGS (1)
  1. ADVAIR DISKUS 250/50 [Suspect]
     Indication: CHRONIC OBSTRUCTIVE PULMONARY DISEASE
     Dosage: 1 PUFF BID
     Dates: start: 20041020, end: 20041127

REACTIONS (25)
  - ARTHRALGIA [None]
  - BACTERIAL INFECTION [None]
  - BRONCHITIS [None]
  - CONJUNCTIVITIS [None]
  - CONSTIPATION [None]
  - COUGH [None]
  - DYSGEUSIA [None]
  - DYSPHONIA [None]
  - HALLUCINATION [None]
  - HEADACHE [None]
  - HEART RATE INCREASED [None]
  - HYPERHIDROSIS [None]
  - MYALGIA [None]
  - NAUSEA [None]
  - NERVOUSNESS [None]
  - OCULAR HYPERAEMIA [None]
  - ORAL CANDIDIASIS [None]
  - PHARYNGITIS [None]
  - PNEUMONIA [None]
  - RHINITIS [None]
  - SINUSITIS [None]
  - SLEEP DISORDER [None]
  - STOMATITIS [None]
  - TREMOR [None]
  - VIRAL INFECTION [None]
